FAERS Safety Report 20336572 (Version 1)
Quarter: 2022Q1

REPORT INFORMATION
  Report Type: Spontaneous
  Country: CN (occurrence: CN)
  Receive Date: 20220114
  Receipt Date: 20220114
  Transmission Date: 20220423
  Serious: Yes (Death, Other)
  Sender: FDA-Public Use
  Company Number: CN-HQ SPECIALTY-CN-2022INT000009

PATIENT

DRUGS (2)
  1. CISPLATIN [Suspect]
     Active Substance: CISPLATIN
     Indication: Oesophageal squamous cell carcinoma
     Dosage: 25 MG/M2, DAY 1 OF EACH WEEK OF RT
     Route: 042
  2. TS-1 [Suspect]
     Active Substance: GIMERACIL\OTERACIL\TEGAFUR
     Indication: Oesophageal squamous cell carcinoma
     Dosage: 40 MG/M2, BID, ON DAYS 1-14 AND 22-35 DURING RT
     Route: 048

REACTIONS (1)
  - Sepsis [Fatal]
